FAERS Safety Report 6567295-X (Version None)
Quarter: 2010Q1

REPORT INFORMATION
  Report Type: 
  Country: None (occurrence: None)
  Receive Date: 20100202
  Receipt Date: 20100120
  Transmission Date: 20100710
  Serious: Yes (Hospitalization, Other)
  Sender: FDA-Public Use
  Company Number: PHHY2010AT03537

PATIENT
  Age: 34 Year
  Sex: Male

DRUGS (19)
  1. TRILEPTAL [Suspect]
     Dosage: 1200 MG DAILY
     Dates: start: 20090501, end: 20090606
  2. TRILEPTAL [Suspect]
     Dosage: 1800 MG DAILY
     Dates: start: 20090610, end: 20090614
  3. TRILEPTAL [Suspect]
     Dosage: 2100 MG DAILY
     Dates: start: 20090615, end: 20090701
  4. TRILEPTAL [Suspect]
     Dosage: 1800 MG DAILY
     Dates: start: 20090702
  5. TRILEPTAL [Suspect]
     Dosage: 1200 MG DAILY
     Dates: start: 20090703, end: 20090704
  6. TRILEPTAL [Suspect]
     Dosage: 600 MG DAILY
     Dates: start: 20090705, end: 20090707
  7. NEXIUM [Suspect]
     Dosage: 20 MG, UNK
     Dates: start: 20090501
  8. TANATRIL [Suspect]
     Dosage: 5 MG, UNK
     Dates: end: 20090701
  9. TANATRIL [Suspect]
     Dosage: 10 MG, UNK
     Dates: start: 20090702
  10. NOZINAN [Suspect]
     Dosage: 50 MG, UNK
     Dates: start: 20090625, end: 20090707
  11. NOZINAN [Suspect]
     Dosage: UNK
     Dates: start: 20090708
  12. ZYPREXA [Concomitant]
     Dosage: 15 MG, UNK
     Dates: start: 20090501, end: 20090605
  13. ZYPREXA [Concomitant]
     Dosage: 20 MG, UNK
     Dates: start: 20090606, end: 20090608
  14. ZYPREXA [Concomitant]
     Dosage: 30 MG, UNK
     Dates: start: 20090609, end: 20090704
  15. ZYPREXA [Concomitant]
     Dosage: 20 MG, UNK
     Dates: start: 20090705, end: 20090708
  16. ZYPREXA [Concomitant]
     Dosage: 15 MG, UNK
     Dates: start: 20090709, end: 20090716
  17. RISPERDAL [Concomitant]
     Dosage: UNK
     Dates: start: 20090613, end: 20090713
  18. NEUROTOP [Concomitant]
     Dosage: 450 MG, UNK
     Dates: end: 20090702
  19. NEUROTOP [Concomitant]
     Dosage: 600 MG, UNK
     Dates: start: 20090703

REACTIONS (4)
  - ASPARTATE AMINOTRANSFERASE [None]
  - BLOOD CREATINE PHOSPHOKINASE INCREASED [None]
  - BLOOD TRIGLYCERIDES INCREASED [None]
  - HYPONATRAEMIA [None]
